FAERS Safety Report 6806744-6 (Version None)
Quarter: 2010Q2

REPORT INFORMATION
  Report Type: 
  Country: None (occurrence: None)
  Receive Date: 20100629
  Receipt Date: 20081110
  Transmission Date: 20101027
  Serious: No
  Sender: FDA-Public Use
  Company Number: US-PFIZER INC-2008033843

PATIENT
  Sex: Male
  Weight: 68.181 kg

DRUGS (8)
  1. ALPRAZOLAM [Suspect]
     Indication: RELAXATION THERAPY
     Route: 048
     Dates: start: 20060101
  2. ALPRAZOLAM [Suspect]
     Indication: SLEEP DISORDER THERAPY
  3. ARICEPT [Concomitant]
  4. NAMENDA [Concomitant]
  5. OPHTHALMOLOGICALS [Concomitant]
  6. NIASPAN [Concomitant]
  7. VITAMIN E [Concomitant]
  8. ZOLOFT [Concomitant]

REACTIONS (1)
  - DRUG INEFFECTIVE [None]
